FAERS Safety Report 21176716 (Version 3)
Quarter: 2022Q3

REPORT INFORMATION
  Report Type: Report from Study
  Country: IE (occurrence: None)
  Receive Date: 20220805
  Receipt Date: 20220916
  Transmission Date: 20221026
  Serious: Yes (Other)
  Sender: FDA-Public Use
  Company Number: IE-Merck Healthcare KGaA-9340921

PATIENT
  Age: 32 Year
  Sex: Male

DRUGS (6)
  1. SAIZEN [Suspect]
     Active Substance: SOMATROPIN
     Indication: Product used for unknown indication
     Dosage: 0.6 (UNIT UNSPECIFIED)
     Route: 058
     Dates: start: 20070914, end: 20120306
  2. SAIZEN [Suspect]
     Active Substance: SOMATROPIN
     Dosage: 0.5 (UNIT UNSPECIFIED)
     Route: 058
     Dates: start: 20120307, end: 20120617
  3. SAIZEN [Suspect]
     Active Substance: SOMATROPIN
     Route: 058
     Dates: start: 20120618, end: 20131004
  4. SAIZEN [Suspect]
     Active Substance: SOMATROPIN
     Route: 058
     Dates: start: 20131004, end: 20161024
  5. SAIZEN [Suspect]
     Active Substance: SOMATROPIN
     Route: 058
     Dates: start: 20150105, end: 20180214
  6. SAIZEN [Suspect]
     Active Substance: SOMATROPIN
     Route: 058
     Dates: start: 20180214

REACTIONS (2)
  - Seizure [Recovered/Resolved]
  - Stress [Recovered/Resolved]

NARRATIVE: CASE EVENT DATE: 20220728
